FAERS Safety Report 19248338 (Version 3)
Quarter: 2022Q2

REPORT INFORMATION
  Report Type: Spontaneous
  Country: US (occurrence: US)
  Receive Date: 20210512
  Receipt Date: 20220412
  Transmission Date: 20220721
  Serious: No
  Sender: FDA-Public Use
  Company Number: US-PFIZER INC-2021487822

PATIENT
  Age: 87 Year
  Sex: Female

DRUGS (3)
  1. IBRANCE [Suspect]
     Active Substance: PALBOCICLIB
     Dosage: 125 MG
     Dates: start: 20210422
  2. IBRANCE [Suspect]
     Active Substance: PALBOCICLIB
     Dosage: 125 MG
     Dates: start: 20210423
  3. IBRANCE [Suspect]
     Active Substance: PALBOCICLIB
     Dosage: 100 MG

REACTIONS (9)
  - Product dose omission issue [Unknown]
  - Diarrhoea [Unknown]
  - Gait disturbance [Unknown]
  - Urinary tract infection [Unknown]
  - Contusion [Unknown]
  - Back pain [Unknown]
  - Skin discolouration [Unknown]
  - Muscle strain [Unknown]
  - Skin disorder [Unknown]

NARRATIVE: CASE EVENT DATE: 20210501
